FAERS Safety Report 18469239 (Version 1)
Quarter: 2020Q4

REPORT INFORMATION
  Report Type: Spontaneous
  Country: PT (occurrence: PT)
  Receive Date: 20201105
  Receipt Date: 20201105
  Transmission Date: 20210114
  Serious: Yes (Hospitalization, Other)
  Sender: FDA-Public Use
  Company Number: PT-MYLANLABS-2020M1092828

PATIENT
  Age: 46 Year
  Sex: Female

DRUGS (2)
  1. IBUPROFEN. [Suspect]
     Active Substance: IBUPROFEN
     Indication: PRODUCT USED FOR UNKNOWN INDICATION
     Dosage: UNK
     Route: 065
  2. CEFTRIAXONE. [Suspect]
     Active Substance: CEFTRIAXONE
     Indication: BORRELIA TEST
     Dosage: UNK
     Route: 065

REACTIONS (9)
  - Agitation [Recovering/Resolving]
  - Cholestasis [Unknown]
  - Confusional state [Recovering/Resolving]
  - Meningitis aseptic [Recovering/Resolving]
  - Repetitive speech [Recovering/Resolving]
  - Pleocytosis [Recovering/Resolving]
  - Lyme disease [Recovering/Resolving]
  - Pyrexia [Unknown]
  - CSF protein increased [Recovering/Resolving]
